FAERS Safety Report 14923374 (Version 4)
Quarter: 2018Q4

REPORT INFORMATION
  Report Type: Report from Study
  Country: FR (occurrence: FR)
  Receive Date: 20180522
  Receipt Date: 20181016
  Transmission Date: 20190204
  Serious: Yes (Disabling, Other)
  Sender: FDA-Public Use
  Company Number: FR-PFIZER INC-2018197782

PATIENT
  Age: 54 Year
  Sex: Male
  Weight: 78 kg

DRUGS (3)
  1. SUTENT [Suspect]
     Active Substance: SUNITINIB MALATE
     Indication: METASTATIC RENAL CELL CARCINOMA
     Dosage: 50 MG, CYCLIC: 4/2
     Route: 048
     Dates: start: 20171211
  2. CABOZANTINIB [Concomitant]
     Active Substance: CABOZANTINIB
     Indication: RENAL CANCER
     Dosage: UNK
     Route: 048
     Dates: start: 20180511
  3. CORTANCYL [Concomitant]
     Active Substance: PREDNISONE
     Route: 048

REACTIONS (4)
  - Memory impairment [Not Recovered/Not Resolved]
  - Reflexes abnormal [Not Recovered/Not Resolved]
  - Dyspraxia [Not Recovered/Not Resolved]
  - Motor dysfunction [Not Recovered/Not Resolved]

NARRATIVE: CASE EVENT DATE: 20180325
